FAERS Safety Report 21744030 (Version 1)
Quarter: 2022Q4

REPORT INFORMATION
  Report Type: Spontaneous
  Country: ES (occurrence: ES)
  Receive Date: 20221217
  Receipt Date: 20221217
  Transmission Date: 20230112
  Serious: Yes (Other)
  Sender: FDA-Public Use
  Company Number: None

PATIENT
  Age: 67 Year
  Sex: Female

DRUGS (1)
  1. KYMRIAH [Suspect]
     Active Substance: TISAGENLECLEUCEL
     Indication: Lymphoma
     Dosage: UNK (1,2 X 10E6 - 6,0 X 10E8 CELULAS DISPERSION PARA PERFUSION 1-3 BOLSAS DE PERFUSI?N (1 DOSIS DE T
     Route: 042
     Dates: start: 20210114, end: 20210114

REACTIONS (1)
  - Lymphomatoid papulosis [Recovering/Resolving]

NARRATIVE: CASE EVENT DATE: 20210116
